FAERS Safety Report 6157720-0 (Version None)
Quarter: 2009Q2

REPORT INFORMATION
  Report Type: 
  Country: None (occurrence: None)
  Receive Date: 20090414
  Receipt Date: 20090409
  Transmission Date: 20091009
  Serious: Yes (Hospitalization, Other)
  Sender: FDA-Public Use
  Company Number: 58215

PATIENT
  Age: 46 Year
  Sex: Female
  Weight: 67 kg

DRUGS (2)
  1. DICYCLOMINE HCL [Suspect]
     Indication: ABDOMINAL PAIN
     Dates: start: 20090331
  2. DICYCLOMINE HCL [Suspect]
     Indication: DIARRHOEA
     Dates: start: 20090331

REACTIONS (2)
  - INCORRECT ROUTE OF DRUG ADMINISTRATION [None]
  - MEDICATION ERROR [None]
